FAERS Safety Report 8595424-5 (Version None)
Quarter: 2012Q3

REPORT INFORMATION
  Report Type: 
  Country: None (occurrence: None)
  Receive Date: 20120815
  Receipt Date: 20120620
  Transmission Date: 20120928
  Serious: No
  Sender: FDA-Public Use
  Company Number: US-BRISTOL-MYERS SQUIBB COMPANY-16700304

PATIENT
  Age: 55 Year
  Sex: Male
  Weight: 91 kg

DRUGS (2)
  1. AVELOX [Suspect]
  2. ONGLYZA [Suspect]
     Indication: DIABETES MELLITUS

REACTIONS (3)
  - DIZZINESS [None]
  - NAUSEA [None]
  - EAR INFECTION [None]
